FAERS Safety Report 7222364-6 (Version None)
Quarter: 2011Q1

REPORT INFORMATION
  Report Type: 
  Country: None (occurrence: None)
  Receive Date: 20110103
  Receipt Date: 20101217
  Transmission Date: 20110831
  Serious: Yes (Other)
  Sender: FDA-Public Use
  Company Number: 2010SP065485

PATIENT
  Age: 56 Year
  Sex: Male

DRUGS (1)
  1. NOXAFIL [Suspect]
     Indication: PROPHYLAXIS
     Dates: end: 20100101

REACTIONS (3)
  - HEPATIC ENZYME INCREASED [None]
  - ASPERGILLOSIS [None]
  - CANDIDIASIS [None]
